FAERS Safety Report 9229583 (Version 4)
Quarter: 2013Q2

REPORT INFORMATION
  Report Type: Spontaneous
  Country: JP (occurrence: JP)
  Receive Date: 20130414
  Receipt Date: 20130611
  Transmission Date: 20140414
  Serious: Yes (Hospitalization, Disabling)
  Sender: FDA-Public Use
  Company Number: JP-B.I. PHARMACEUTICALS,INC./RIDGEFIELD-2013-BI-09627NB

PATIENT
  Age: 82 Year
  Sex: Male
  Weight: 98 kg

DRUGS (11)
  1. PRAZAXA [Suspect]
     Indication: ATRIAL FIBRILLATION
     Dosage: 220 MG
     Route: 048
     Dates: end: 20130402
  2. ANPLAG [Suspect]
     Route: 048
     Dates: end: 20130402
  3. KETAS [Concomitant]
     Route: 048
     Dates: end: 20130402
  4. FLUITRAN [Concomitant]
     Route: 048
     Dates: end: 20130402
  5. NORVASC [Concomitant]
     Route: 048
  6. FEBURIC [Concomitant]
     Route: 048
     Dates: end: 20130402
  7. TENORMIN [Concomitant]
     Route: 048
     Dates: end: 20130402
  8. BLOPRESS [Concomitant]
     Route: 048
     Dates: end: 20130402
  9. ANPLAG [Concomitant]
     Route: 048
     Dates: end: 20130402
  10. PRORENAL [Concomitant]
     Dosage: 15 MCG
     Route: 048
     Dates: end: 20130402
  11. HARNAL [Concomitant]
     Route: 048

REACTIONS (1)
  - Cerebral infarction [Recovered/Resolved with Sequelae]
